APPROVED DRUG PRODUCT: NATRECOR
Active Ingredient: NESIRITIDE
Strength: 1.5MG/VIAL **Federal Register determination that product was not discontinued or withdrawn for safety or effectiveness reasons**
Dosage Form/Route: FOR SOLUTION;INTRAVENOUS
Application: N020920 | Product #001
Applicant: SCIOS LLC
Approved: Aug 10, 2001 | RLD: Yes | RS: No | Type: DISCN